FAERS Safety Report 16475397 (Version 2)
Quarter: 2019Q3

REPORT INFORMATION
  Report Type: Report from Study
  Country: US (occurrence: US)
  Receive Date: 20190625
  Receipt Date: 20190701
  Transmission Date: 20191004
  Serious: Yes (Other)
  Sender: FDA-Public Use
  Company Number: PHEH2019US026244

PATIENT
  Sex: Female

DRUGS (1)
  1. ENTRESTO [Suspect]
     Active Substance: SACUBITRIL\VALSARTAN
     Indication: PRODUCT USED FOR UNKNOWN INDICATION
     Route: 065

REACTIONS (6)
  - Viral myocarditis [Unknown]
  - Influenza [Unknown]
  - Diabetes mellitus [Unknown]
  - Cardiac failure [Unknown]
  - Therapeutic product effect incomplete [Unknown]
  - Headache [Unknown]
